FAERS Safety Report 24684098 (Version 1)
Quarter: 2024Q4

REPORT INFORMATION
  Report Type: Spontaneous
  Country: US (occurrence: US)
  Receive Date: 20241202
  Receipt Date: 20241202
  Transmission Date: 20250115
  Serious: No
  Sender: CHATTEM
  Company Number: US-OPELLA-2024OHG038174

PATIENT
  Sex: Male

DRUGS (1)
  1. CHILDRENS ALLEGRA ALLERGY [Suspect]
     Active Substance: FEXOFENADINE HYDROCHLORIDE
     Indication: Product used for unknown indication
     Route: 065

REACTIONS (3)
  - Rash [Unknown]
  - Product physical consistency issue [Unknown]
  - Product formulation issue [Unknown]
